FAERS Safety Report 15387818 (Version 1)
Quarter: 2018Q3

REPORT INFORMATION
  Report Type: Report from Study
  Country: CA (occurrence: CA)
  Receive Date: 20180914
  Receipt Date: 20180914
  Transmission Date: 20181010
  Serious: Yes (Other)
  Sender: FDA-Public Use
  Company Number: CA-GILEAD-2018-0362680

PATIENT
  Age: 53 Year
  Sex: Male

DRUGS (1)
  1. SOFOSBUVIR W/VELPATASVIR [Suspect]
     Active Substance: SOFOSBUVIR\VELPATASVIR
     Indication: CHRONIC HEPATITIS C
     Dosage: 1 DF, UNK
     Route: 048

REACTIONS (11)
  - Oral mucosal blistering [Not Recovered/Not Resolved]
  - Pharyngeal oedema [Not Recovered/Not Resolved]
  - Rash macular [Unknown]
  - Chills [Unknown]
  - Lip blister [Not Recovered/Not Resolved]
  - Blood glucose fluctuation [Unknown]
  - Pain in extremity [Unknown]
  - Lip swelling [Not Recovered/Not Resolved]
  - Influenza [Unknown]
  - Vomiting [Unknown]
  - Cellulitis [Unknown]

NARRATIVE: CASE EVENT DATE: 201809
